FAERS Safety Report 21362425 (Version 2)
Quarter: 2022Q4

REPORT INFORMATION
  Report Type: Spontaneous
  Country: JP (occurrence: JP)
  Receive Date: 20220922
  Receipt Date: 20221013
  Transmission Date: 20230113
  Serious: Yes (Other)
  Sender: FDA-Public Use
  Company Number: JP-CHUGAI-2022036283

PATIENT
  Age: 4 Decade
  Sex: Male

DRUGS (1)
  1. ENSPRYNG [Suspect]
     Active Substance: SATRALIZUMAB-MWGE
     Indication: Neuromyelitis optica spectrum disorder
     Dosage: 120 MILLIGRAM, ONCE/4WEEKS
     Route: 058
     Dates: start: 20220715

REACTIONS (4)
  - Neuromyelitis optica spectrum disorder [Recovered/Resolved]
  - Mass [Unknown]
  - Rash [Recovered/Resolved]
  - Back pain [Recovered/Resolved]
